FAERS Safety Report 7292646-0 (Version None)
Quarter: 2011Q1

REPORT INFORMATION
  Report Type: 
  Country: None (occurrence: None)
  Receive Date: 20110211
  Receipt Date: 20110211
  Transmission Date: 20110831
  Serious: Yes (Disabling)
  Sender: FDA-Public Use
  Company Number: None

PATIENT
  Age: 37 Year
  Sex: Female
  Weight: 92.5338 kg

DRUGS (1)
  1. TRIAD ALCOHOL SWABS 70% ISOPROPYL ALCOHOL TRIAD GROU INC [Suspect]
     Indication: THERAPEUTIC SKIN CARE TOPICAL
     Dosage: 1 SWAB DAILY ON SKIN PRIOR TO INJECTION DAILY TOP
     Route: 061
     Dates: start: 20101125, end: 20110210

REACTIONS (3)
  - PRODUCT QUALITY ISSUE [None]
  - VIRAL UPPER RESPIRATORY TRACT INFECTION [None]
  - SKIN DISORDER [None]
